FAERS Safety Report 20008334 (Version 2)
Quarter: 2022Q1

REPORT INFORMATION
  Report Type: Spontaneous
  Country: US (occurrence: None)
  Receive Date: 20211029
  Receipt Date: 20220128
  Transmission Date: 20220423
  Serious: No
  Sender: FDA-Public Use
  Company Number: US-ULTRAGENYX PHARMACEUTICAL INC.-US-UGNX-21-00225

PATIENT
  Sex: Male

DRUGS (4)
  1. DOJOLVI [Suspect]
     Active Substance: TRIHEPTANOIN
     Indication: Fatty acid oxidation disorder
     Route: 048
     Dates: start: 20210705, end: 20210707
  2. DOJOLVI [Suspect]
     Active Substance: TRIHEPTANOIN
     Route: 048
     Dates: start: 20210705
  3. DOJOLVI [Suspect]
     Active Substance: TRIHEPTANOIN
     Dosage: 10, 5 AND 5MLS
     Route: 048
  4. DOJOLVI [Suspect]
     Active Substance: TRIHEPTANOIN
     Dosage: 5 AND 5MLS
     Route: 048

REACTIONS (2)
  - Abdominal pain upper [Unknown]
  - Product preparation error [Unknown]
